FAERS Safety Report 5460648-2 (Version None)
Quarter: 2007Q3

REPORT INFORMATION
  Report Type: 
  Country: None (occurrence: None)
  Receive Date: 20070918
  Receipt Date: 20070913
  Transmission Date: 20080115
  Serious: Yes (Death)
  Sender: FDA-Public Use
  Company Number: THQ2007A00697

PATIENT
  Sex: Female

DRUGS (6)
  1. PIOGLITAZONE HCL [Suspect]
     Indication: DIABETES MELLITUS
     Dosage: PER ORAL
     Route: 048
  2. ASPIRIN [Concomitant]
  3. LOSARTAN POSTASSIUM [Concomitant]
  4. ALPRAZOLAM [Concomitant]
  5. ATORVASTATIN CALCIUM [Concomitant]
  6. OLANZAPINE [Concomitant]

REACTIONS (1)
  - PANCREATIC CARCINOMA [None]
